FAERS Safety Report 8281771-3 (Version None)
Quarter: 2012Q2

REPORT INFORMATION
  Report Type: 
  Country: None (occurrence: None)
  Receive Date: 20120413
  Receipt Date: 20120404
  Transmission Date: 20120825
  Serious: Yes (Congenital Anomaly)
  Sender: FDA-Public Use
  Company Number: US-JNJFOC-20111203521

PATIENT
  Sex: Male

DRUGS (2)
  1. MULTI-VITAMINS [Concomitant]
     Indication: FOETAL EXPOSURE DURING PREGNANCY
     Route: 064
  2. TOPAMAX [Suspect]
     Indication: FOETAL EXPOSURE DURING PREGNANCY
     Route: 064
     Dates: start: 20070221, end: 20071129

REACTIONS (4)
  - PREMATURE BABY [None]
  - HYPOSPADIAS [None]
  - TESTICULAR RETRACTION [None]
  - ANXIETY [None]
